FAERS Safety Report 4899482-0 (Version None)
Quarter: 2006Q1

REPORT INFORMATION
  Report Type: 
  Country: None (occurrence: None)
  Receive Date: 20060118
  Receipt Date: 20051017
  Transmission Date: 20060701
  Serious: Yes (Hospitalization)
  Sender: FDA-Public Use
  Company Number: 2005002039

PATIENT
  Age: 81 Year
  Sex: Male

DRUGS (7)
  1. TARCEVA [Suspect]
     Indication: LUNG NEOPLASM MALIGNANT
     Dosage: 150 MG (QD), ORAL
     Route: 048
     Dates: start: 20050920
  2. MINOCYCLINE HCL [Concomitant]
  3. COUMADIN [Concomitant]
  4. BUMEX [Concomitant]
  5. LIPITOR [Concomitant]
  6. LOTREL [Concomitant]
  7. AMIODARONE (AMIODARONE) [Concomitant]

REACTIONS (3)
  - ANAEMIA [None]
  - GASTROINTESTINAL HAEMORRHAGE [None]
  - RASH [None]
